FAERS Safety Report 25549276 (Version 1)
Quarter: 2025Q3

REPORT INFORMATION
  Report Type: Spontaneous
  Country: EU (occurrence: EU)
  Receive Date: 20250714
  Receipt Date: 20250714
  Transmission Date: 20251020
  Serious: Yes (Death)
  Sender: MYLAN
  Company Number: None

PATIENT
  Age: 17 Year
  Sex: Male
  Weight: 49 kg

DRUGS (36)
  1. METHOTREXATE [Suspect]
     Active Substance: METHOTREXATE
     Indication: Precursor T-lymphoblastic leukaemia acute
     Dates: start: 20241125, end: 20241221
  2. METHOTREXATE [Suspect]
     Active Substance: METHOTREXATE
     Route: 037
     Dates: start: 20241125, end: 20241221
  3. METHOTREXATE [Suspect]
     Active Substance: METHOTREXATE
     Route: 037
     Dates: start: 20241125, end: 20241221
  4. METHOTREXATE [Suspect]
     Active Substance: METHOTREXATE
     Dates: start: 20241125, end: 20241221
  5. DASATINIB [Suspect]
     Active Substance: DASATINIB
     Indication: Precursor T-lymphoblastic leukaemia acute
     Dosage: 100 MILLIGRAM, QD
     Route: 048
     Dates: start: 20241210
  6. DASATINIB [Suspect]
     Active Substance: DASATINIB
     Dosage: 100 MILLIGRAM, QD
     Dates: start: 20241210
  7. DASATINIB [Suspect]
     Active Substance: DASATINIB
     Dosage: 100 MILLIGRAM, QD
     Dates: start: 20241210
  8. DASATINIB [Suspect]
     Active Substance: DASATINIB
     Dosage: 100 MILLIGRAM, QD
     Route: 048
     Dates: start: 20241210
  9. DASATINIB [Suspect]
     Active Substance: DASATINIB
     Dosage: 70 MILLIGRAM, QD
     Route: 048
     Dates: start: 20241217, end: 20241224
  10. DASATINIB [Suspect]
     Active Substance: DASATINIB
     Dosage: 70 MILLIGRAM, QD
     Dates: start: 20241217, end: 20241224
  11. DASATINIB [Suspect]
     Active Substance: DASATINIB
     Dosage: 70 MILLIGRAM, QD
     Dates: start: 20241217, end: 20241224
  12. DASATINIB [Suspect]
     Active Substance: DASATINIB
     Dosage: 70 MILLIGRAM, QD
     Route: 048
     Dates: start: 20241217, end: 20241224
  13. CYTARABINE [Suspect]
     Active Substance: CYTARABINE
     Indication: Precursor T-lymphoblastic leukaemia acute
     Dates: start: 20241125, end: 20241221
  14. CYTARABINE [Suspect]
     Active Substance: CYTARABINE
     Route: 037
     Dates: start: 20241125, end: 20241221
  15. CYTARABINE [Suspect]
     Active Substance: CYTARABINE
     Route: 037
     Dates: start: 20241125, end: 20241221
  16. CYTARABINE [Suspect]
     Active Substance: CYTARABINE
     Dates: start: 20241125, end: 20241221
  17. DEPO-MEDROL [Suspect]
     Active Substance: METHYLPREDNISOLONE ACETATE
     Indication: Precursor T-lymphoblastic leukaemia acute
     Dates: start: 20241125, end: 20241221
  18. DEPO-MEDROL [Suspect]
     Active Substance: METHYLPREDNISOLONE ACETATE
     Route: 037
     Dates: start: 20241125, end: 20241221
  19. DEPO-MEDROL [Suspect]
     Active Substance: METHYLPREDNISOLONE ACETATE
     Route: 037
     Dates: start: 20241125, end: 20241221
  20. DEPO-MEDROL [Suspect]
     Active Substance: METHYLPREDNISOLONE ACETATE
     Dates: start: 20241125, end: 20241221
  21. METHOTREXATE (METHOTREXATE SODIUM) [Suspect]
     Active Substance: METHOTREXATE SODIUM
     Indication: Precursor T-lymphoblastic leukaemia acute
     Dates: start: 20241125, end: 20241125
  22. METHOTREXATE (METHOTREXATE SODIUM) [Suspect]
     Active Substance: METHOTREXATE SODIUM
     Route: 042
     Dates: start: 20241125, end: 20241125
  23. METHOTREXATE (METHOTREXATE SODIUM) [Suspect]
     Active Substance: METHOTREXATE SODIUM
     Route: 042
     Dates: start: 20241125, end: 20241125
  24. METHOTREXATE (METHOTREXATE SODIUM) [Suspect]
     Active Substance: METHOTREXATE SODIUM
     Dates: start: 20241125, end: 20241125
  25. ONCASPAR [Suspect]
     Active Substance: PEGASPARGASE
     Indication: Precursor T-lymphoblastic leukaemia acute
     Dates: start: 20241129
  26. ONCASPAR [Suspect]
     Active Substance: PEGASPARGASE
     Dates: start: 20241129
  27. ONCASPAR [Suspect]
     Active Substance: PEGASPARGASE
     Route: 042
     Dates: start: 20241129
  28. ONCASPAR [Suspect]
     Active Substance: PEGASPARGASE
     Route: 042
     Dates: start: 20241129
  29. ONCASPAR [Suspect]
     Active Substance: PEGASPARGASE
     Dates: end: 20241213
  30. ONCASPAR [Suspect]
     Active Substance: PEGASPARGASE
     Dates: end: 20241213
  31. ONCASPAR [Suspect]
     Active Substance: PEGASPARGASE
     Route: 042
     Dates: end: 20241213
  32. ONCASPAR [Suspect]
     Active Substance: PEGASPARGASE
     Route: 042
     Dates: end: 20241213
  33. CYTARABINE [Suspect]
     Active Substance: CYTARABINE
     Indication: Precursor T-lymphoblastic leukaemia acute
     Dates: start: 20241210, end: 20241212
  34. CYTARABINE [Suspect]
     Active Substance: CYTARABINE
     Route: 042
     Dates: start: 20241210, end: 20241212
  35. CYTARABINE [Suspect]
     Active Substance: CYTARABINE
     Route: 042
     Dates: start: 20241210, end: 20241212
  36. CYTARABINE [Suspect]
     Active Substance: CYTARABINE
     Dates: start: 20241210, end: 20241212

REACTIONS (1)
  - Brain oedema [Fatal]

NARRATIVE: CASE EVENT DATE: 20241226
